FAERS Safety Report 11118372 (Version 2)
Quarter: 2015Q2

REPORT INFORMATION
  Report Type: Spontaneous
  Country: JP (occurrence: None)
  Receive Date: 20150514
  Receipt Date: 20150529
  Transmission Date: 20150821
  Serious: Yes (Death)
  Sender: FDA-Public Use
  Company Number: SP09367

PATIENT
  Age: 66 Year
  Sex: Male

DRUGS (8)
  1. BEZATOL SR [Concomitant]
     Active Substance: BEZAFIBRATE
  2. MOVIPREP [Suspect]
     Active Substance: ASCORBIC ACID\POLYETHYLENE GLYCOL 3350\POTASSIUM CHLORIDE\SODIUM ASCORBATE\SODIUM CHLORIDE\SODIUM SULFATE
     Indication: BOWEL PREPARATION
     Route: 048
     Dates: start: 20150415, end: 20150415
  3. BAYASPIRIN [Concomitant]
     Active Substance: ASPIRIN
  4. HEPARIN [Concomitant]
     Active Substance: HEPARIN SODIUM
  5. AMLODIN [Concomitant]
     Active Substance: AMLODIPINE BESYLATE
  6. OLMETEC [Concomitant]
     Active Substance: OLMESARTAN MEDOXOMIL
  7. CRESTOR [Concomitant]
     Active Substance: ROSUVASTATIN CALCIUM
  8. WARFARIN [Concomitant]
     Active Substance: WARFARIN

REACTIONS (2)
  - Volume blood decreased [None]
  - Myocardial infarction [None]

NARRATIVE: CASE EVENT DATE: 20150415
